FAERS Safety Report 5644441-3 (Version None)
Quarter: 2008Q1

REPORT INFORMATION
  Report Type: 
  Country: None (occurrence: None)
  Receive Date: 20080229
  Receipt Date: 20070516
  Transmission Date: 20080703
  Serious: No
  Sender: FDA-Public Use
  Company Number: A0598268A

PATIENT
  Sex: Female

DRUGS (1)
  1. VALTREX [Suspect]
     Route: 048

REACTIONS (3)
  - DRUG EFFECT DECREASED [None]
  - ORAL HERPES [None]
  - THERAPEUTIC RESPONSE UNEXPECTED [None]
